FAERS Safety Report 25185196 (Version 1)
Quarter: 2025Q2

REPORT INFORMATION
  Report Type: Spontaneous
  Country: PT (occurrence: PT)
  Receive Date: 20250410
  Receipt Date: 20250410
  Transmission Date: 20250716
  Serious: Yes (Hospitalization, Other)
  Sender: PURDUE
  Company Number: PT-NAPPMUNDI-GBR-2025-0124715

PATIENT
  Age: 41 Year
  Sex: Female

DRUGS (4)
  1. MORPHINE SULFATE [Suspect]
     Active Substance: MORPHINE SULFATE
     Indication: Product used for unknown indication
     Route: 065
  2. MORPHINE SULFATE [Suspect]
     Active Substance: MORPHINE SULFATE
     Indication: Product used for unknown indication
     Route: 065
  3. LEVOBUPIVACAINE [Suspect]
     Active Substance: LEVOBUPIVACAINE
     Indication: Anaesthesia
     Route: 008
  4. SUFENTANIL [Suspect]
     Active Substance: SUFENTANIL
     Indication: Product used for unknown indication
     Route: 065

REACTIONS (5)
  - Uterine atony [Recovering/Resolving]
  - Uterine haemorrhage [Recovering/Resolving]
  - Haemodynamic instability [Recovering/Resolving]
  - Unresponsive to stimuli [Recovering/Resolving]
  - Tachycardia [Recovering/Resolving]
